FAERS Safety Report 5881488-6 (Version None)
Quarter: 2008Q3

REPORT INFORMATION
  Report Type: 
  Country: None (occurrence: None)
  Receive Date: 20080912
  Receipt Date: 20080724
  Transmission Date: 20090109
  Serious: No
  Sender: FDA-Public Use
  Company Number: US-ABBOTT-08P-163-0460585-00

PATIENT
  Sex: Female
  Weight: 64.468 kg

DRUGS (3)
  1. HUMIRA [Suspect]
     Indication: RHEUMATOID ARTHRITIS
     Route: 058
     Dates: start: 20080616
  2. UNKNOWN ARTHRITIS MEDICATION [Concomitant]
     Indication: RHEUMATOID ARTHRITIS
  3. UNKNOWN DIABETIC MEDICATION [Concomitant]
     Indication: DIABETES MELLITUS
     Route: 048

REACTIONS (1)
  - CONTUSION [None]
